FAERS Safety Report 4350427-1 (Version None)
Quarter: 2004Q2

REPORT INFORMATION
  Report Type: 
  Country: None (occurrence: None)
  Receive Date: 20040427
  Receipt Date: 20040420
  Transmission Date: 20050107
  Serious: Yes (Hospitalization)
  Sender: FDA-Public Use
  Company Number: 2004209839US

PATIENT
  Age: 25 Year
  Sex: Female

DRUGS (3)
  1. ZYVOX [Suspect]
     Dates: start: 20040101
  2. LAMICTAL [Suspect]
     Indication: EPILEPSY
     Dosage: SEE IMAGE
     Route: 048
     Dates: start: 20020101, end: 20040101
  3. LAMICTAL [Suspect]
     Indication: EPILEPSY
     Dosage: SEE IMAGE
     Route: 048
     Dates: start: 20040101

REACTIONS (2)
  - CONVULSION [None]
  - DRUG INTERACTION [None]
